FAERS Safety Report 15067396 (Version 1)
Quarter: 2018Q2

REPORT INFORMATION
  Report Type: Spontaneous
  Country: AU (occurrence: AU)
  Receive Date: 20180626
  Receipt Date: 20180626
  Transmission Date: 20180711
  Serious: Yes (Other)
  Sender: FDA-Public Use
  Company Number: AU-AMGEN-AUSSP2018084095

PATIENT
  Age: 80 Year
  Sex: Female
  Weight: 59 kg

DRUGS (2)
  1. PROLIA [Suspect]
     Active Substance: DENOSUMAB
     Indication: PRODUCT USED FOR UNKNOWN INDICATION
     Dosage: 60 MG(1:7 INJECTION), Q6MO
     Route: 065
     Dates: start: 20141201, end: 20180528
  2. CELEBREX [Concomitant]
     Active Substance: CELECOXIB
     Dosage: 200 MG(FEW TIMES PER MONTH),

REACTIONS (1)
  - Osteonecrosis [Recovering/Resolving]

NARRATIVE: CASE EVENT DATE: 20180401
